FAERS Safety Report 6751025-2 (Version None)
Quarter: 2010Q2

REPORT INFORMATION
  Report Type: 
  Country: None (occurrence: None)
  Receive Date: 20100526
  Receipt Date: 20100421
  Transmission Date: 20101027
  Serious: Yes (Death)
  Sender: FDA-Public Use
  Company Number: PL-000342

PATIENT
  Sex: Female
  Weight: 40 kg

DRUGS (1)
  1. NAGLAZYME           (NAGLAZYME)      (GALSULFASE) SOLUTION (EXCEPT SYR [Suspect]
     Indication: MUCOPOLYSACCHARIDOSIS VI
     Dosage: (INTRAVENOUS DRIP)
     Route: 041
     Dates: start: 20100330, end: 20100412

REACTIONS (1)
  - CARDIAC FAILURE [None]
